FAERS Safety Report 12311554 (Version 1)
Quarter: 2016Q2

REPORT INFORMATION
  Report Type: Report from Study
  Country: US (occurrence: US)
  Receive Date: 20160427
  Receipt Date: 20160427
  Transmission Date: 20160815
  Serious: Yes (Hospitalization)
  Sender: FDA-Public Use
  Company Number: US-ABBVIE-16K-163-1609624-00

PATIENT
  Age: 60 Year
  Sex: Female

DRUGS (1)
  1. HUMIRA [Suspect]
     Active Substance: ADALIMUMAB
     Indication: RHEUMATOID ARTHRITIS
     Route: 058
     Dates: start: 20160401, end: 20160401

REACTIONS (3)
  - Abdominal pain [Unknown]
  - Bile duct stone [Unknown]
  - Hepatic vascular thrombosis [Unknown]

NARRATIVE: CASE EVENT DATE: 201604
